FAERS Safety Report 24425542 (Version 3)
Quarter: 2024Q4

REPORT INFORMATION
  Report Type: Other
  Country: CA (occurrence: CA)
  Receive Date: 20241011
  Receipt Date: 20241127
  Transmission Date: 20250114
  Serious: Yes (Hospitalization)
  Sender: INTERCEPT PHARMACEUTICALS
  Company Number: CA-INTERCEPT-PM2019000338

PATIENT
  Age: 43 Year
  Sex: Female

DRUGS (6)
  1. OCALIVA [Suspect]
     Active Substance: OBETICHOLIC ACID
     Indication: Primary biliary cholangitis
     Dosage: 5 MG, QD
     Route: 048
     Dates: start: 20180119, end: 20190221
  2. OCALIVA [Suspect]
     Active Substance: OBETICHOLIC ACID
     Dosage: 10 MG, QD ( ON HOLD)
     Route: 048
     Dates: start: 20190222
  3. URSO [Concomitant]
     Active Substance: URSODIOL
     Indication: Primary biliary cholangitis
     Dosage: 2 G, QD
     Route: 065
     Dates: start: 2015
  4. URSO [Concomitant]
     Active Substance: URSODIOL
     Dosage: 2 DOSAGE FORM, BID
     Route: 048
     Dates: start: 2015
  5. JARDIANCE [Concomitant]
     Active Substance: EMPAGLIFLOZIN
     Indication: Diabetes mellitus
     Dosage: UNK
  6. CLARITIN [Concomitant]
     Active Substance: LORATADINE
     Indication: Pruritus
     Dosage: UNK, QD

REACTIONS (11)
  - Hospitalisation [Unknown]
  - Liver disorder [Unknown]
  - Bilirubin conjugated increased [Unknown]
  - Lower limb fracture [Not Recovered/Not Resolved]
  - Alanine aminotransferase abnormal [Not Recovered/Not Resolved]
  - Gamma-glutamyltransferase increased [Unknown]
  - Blood alkaline phosphatase abnormal [Not Recovered/Not Resolved]
  - Blood bilirubin increased [Unknown]
  - Product dose omission issue [Unknown]
  - Product availability issue [Unknown]
  - Therapy interrupted [Unknown]

NARRATIVE: CASE EVENT DATE: 20180901
